FAERS Safety Report 25287388 (Version 2)
Quarter: 2025Q3

REPORT INFORMATION
  Report Type: Report from Study
  Country: GB (occurrence: GB)
  Receive Date: 20250509
  Receipt Date: 20250915
  Transmission Date: 20251020
  Serious: Yes (Hospitalization)
  Sender: SAMSUNG BIOEPIS
  Company Number: GB-SAMSUNG BIOEPIS-SB-2025-16026

PATIENT
  Sex: Female

DRUGS (1)
  1. PYZCHIVA [Suspect]
     Active Substance: USTEKINUMAB-TTWE
     Indication: Psoriatic arthropathy
     Dosage: 45MG/0.5ML;
     Route: 058
     Dates: start: 20250430

REACTIONS (6)
  - Pharyngeal swelling [Unknown]
  - Dizziness [Unknown]
  - Paraesthesia [Unknown]
  - Chest pain [Unknown]
  - Blood pressure increased [Unknown]
  - Hypersensitivity [Unknown]
